FAERS Safety Report 6406177-0 (Version None)
Quarter: 2009Q4

REPORT INFORMATION
  Report Type: 
  Country: None (occurrence: None)
  Receive Date: 20091014
  Receipt Date: 20090930
  Transmission Date: 20100525
  Serious: Yes (Hospitalization)
  Sender: FDA-Public Use
  Company Number: 2009AC000028

PATIENT
  Age: 53 Year
  Sex: Male
  Weight: 110 kg

DRUGS (65)
  1. DIGOXIN [Suspect]
     Indication: CARDIAC DISORDER
     Dosage: 0.125 MG;QD; PO
     Route: 048
  2. ASPIRIN [Concomitant]
  3. CARVEDILOL [Concomitant]
  4. CLOPIDOGREL [Concomitant]
  5. ADVAIR DISKUS 100/50 [Concomitant]
  6. FUROSEMIDE [Concomitant]
  7. HYDRALAZINE HCL [Concomitant]
  8. HYDROCODONE [Concomitant]
  9. LANTUS [Concomitant]
  10. INSULIN [Concomitant]
  11. NOVOLOG [Concomitant]
  12. ISOSORBIDE [Concomitant]
  13. MAGNESIUM OXIDE [Concomitant]
  14. NITROGLYCERIN [Concomitant]
  15. POTASSIUM CHLORIDE [Concomitant]
  16. PROPOXYPHENE HCL CAP [Concomitant]
  17. SPIRIVA [Concomitant]
  18. ACETAMINOPHEN [Concomitant]
  19. VICODIN [Concomitant]
  20. CRESTOR [Concomitant]
  21. ALTACE [Concomitant]
  22. METOPROLOL [Concomitant]
  23. SPIRONOLACTONE [Concomitant]
  24. ATACAND [Concomitant]
  25. GLYBURIDE AND METFORMIN HCL [Concomitant]
  26. CLOPIDOGREL [Concomitant]
  27. BISULFATE [Concomitant]
  28. STARLIX [Concomitant]
  29. PLAVIX [Concomitant]
  30. JANUVIA [Concomitant]
  31. KLOR-CON [Concomitant]
  32. MUSE [Concomitant]
  33. FEXOFENADINE HCL [Concomitant]
  34. AZITHROMYCIN [Concomitant]
  35. ALBUTEROL [Concomitant]
  36. METHYLPREDNISOLONE 4MG TAB [Concomitant]
  37. PROPDXYPHNENE-APA [Concomitant]
  38. MELOXICAM [Concomitant]
  39. DOXYCYCLINE HYCLATE [Concomitant]
  40. PROAIR HFA [Concomitant]
  41. LEVAQUIN [Concomitant]
  42. PREDNISONE TAB [Concomitant]
  43. SULFAMETHOXAZOLE AND TRIMETHOPRIM [Concomitant]
  44. DIAZEPAM [Concomitant]
  45. NOVOFINE [Concomitant]
  46. LACTULOSE [Concomitant]
  47. LIDODERM [Concomitant]
  48. GABAPENTIN [Concomitant]
  49. OXYCONTIN [Concomitant]
  50. DICLOFENAC SODIUM [Concomitant]
  51. CARISOPRODOL [Concomitant]
  52. NAPROXEN SODIUM [Concomitant]
  53. TRAMADOL HCL [Concomitant]
  54. KAYEXALATE [Concomitant]
  55. ALEVE [Concomitant]
  56. VIAGRA [Concomitant]
  57. NORVASC [Concomitant]
  58. DIPRIVAN [Concomitant]
  59. ROCEPHIN [Concomitant]
  60. LYRICA [Concomitant]
  61. LACTULOSE [Concomitant]
  62. MUCINEX [Concomitant]
  63. MIRALAX [Concomitant]
  64. AMLODIPINE BESYLATE [Concomitant]
  65. METFORMIN HCL [Concomitant]

REACTIONS (38)
  - ABDOMINAL DISTENSION [None]
  - ACUTE PRERENAL FAILURE [None]
  - ANAEMIA [None]
  - ARTHRALGIA [None]
  - ASTHENIA [None]
  - BACK PAIN [None]
  - BRONCHITIS [None]
  - CARDIAC FAILURE CONGESTIVE [None]
  - CARDIOMEGALY [None]
  - CHRONIC OBSTRUCTIVE PULMONARY DISEASE [None]
  - CONGESTIVE CARDIOMYOPATHY [None]
  - CONSTIPATION [None]
  - CORONARY ARTERY DISEASE [None]
  - COUGH [None]
  - DEHYDRATION [None]
  - DIABETES MELLITUS [None]
  - DIABETES MELLITUS INADEQUATE CONTROL [None]
  - DYSPNOEA [None]
  - DYSSTASIA [None]
  - GASTRIC POLYPS [None]
  - HYPERCHOLESTEROLAEMIA [None]
  - HYPERKALAEMIA [None]
  - HYPERNATRAEMIA [None]
  - HYPERTENSION [None]
  - INTERVERTEBRAL DISC DEGENERATION [None]
  - MULTIPLE INJURIES [None]
  - MUSCULOSKELETAL PAIN [None]
  - PAIN [None]
  - PAIN IN EXTREMITY [None]
  - PULMONARY HYPERTENSION [None]
  - PULMONARY OEDEMA [None]
  - PYREXIA [None]
  - RENAL FAILURE [None]
  - RESPIRATORY ARREST [None]
  - RESPIRATORY FAILURE [None]
  - SLEEP APNOEA SYNDROME [None]
  - SPINAL COLUMN STENOSIS [None]
  - WEIGHT INCREASED [None]
